FAERS Safety Report 4415835-9 (Version None)
Quarter: 2004Q3

REPORT INFORMATION
  Report Type: 
  Country: None (occurrence: None)
  Receive Date: 20040730
  Receipt Date: 20040716
  Transmission Date: 20050211
  Serious: Yes (Death)
  Sender: FDA-Public Use
  Company Number: 208054

PATIENT
  Age: 52 Year
  Sex: Female
  Weight: 47 kg

DRUGS (2)
  1. HERCEPTIN [Suspect]
     Indication: BREAST CANCER
     Dosage: 96 MG, 1/WEEK, INTRAVENOUS
     Route: 042
     Dates: start: 20031118, end: 20040622
  2. ZOMETA [Concomitant]

REACTIONS (3)
  - HEPATIC FAILURE [None]
  - HEPATIC STEATOSIS [None]
  - MULTI-ORGAN FAILURE [None]
